FAERS Safety Report 6706361-2 (Version None)
Quarter: 2010Q2

REPORT INFORMATION
  Report Type: 
  Country: None (occurrence: None)
  Receive Date: 20100503
  Receipt Date: 20100421
  Transmission Date: 20101027
  Serious: Yes (Hospitalization)
  Sender: FDA-Public Use
  Company Number: US-ELI_LILLY_AND_COMPANY-US201004006693

PATIENT
  Sex: Female

DRUGS (2)
  1. FORTEO [Suspect]
     Indication: OSTEOPOROSIS
     Dosage: 20 UG, DAILY (1/D)
  2. VICODIN [Concomitant]
     Indication: PAIN
     Dosage: 1 D/F, AS NEEDED

REACTIONS (3)
  - FALL [None]
  - UPPER LIMB FRACTURE [None]
  - WRIST FRACTURE [None]
